FAERS Safety Report 6748890 (Version 2)
Quarter: 2014Q4

REPORT INFORMATION
  Report Type: Spontaneous
  Country: US (occurrence: US)
  Receive Date: 20080905
  Receipt Date: 20141105
  Transmission Date: 20150529
  Serious: Yes (Hospitalization, Other)
  Sender: FDA-Public Use
  Company Number: US-ELI_LILLY_AND_COMPANY-US200808002241

PATIENT
  Age: 83 Year
  Sex: Female

DRUGS (1)
  1. GEMZAR [Suspect]
     Active Substance: GEMCITABINE HYDROCHLORIDE
     Indication: OVARIAN CANCER
     Dosage: 800 MG/M2; ON DAYS 1, 14, AND 28, EVERY 4 WEEKS FOR COMPLETION OF 1.5 CYCLES
     Route: 065

REACTIONS (6)
  - Pulmonary embolism [Recovered/Resolved]
  - Malignant neoplasm progression [Not Recovered/Not Resolved]
  - Pneumonia [Recovering/Resolving]
  - Acute pulmonary oedema [Recovering/Resolving]
  - Interstitial lung disease [Recovering/Resolving]
  - Pyrexia [Recovered/Resolved]

NARRATIVE: CASE EVENT DATE: 2005
